FAERS Safety Report 23842621 (Version 1)
Quarter: 2024Q2

REPORT INFORMATION
  Report Type: Spontaneous
  Country: FR (occurrence: FR)
  Receive Date: 20240510
  Receipt Date: 20240510
  Transmission Date: 20240715
  Serious: Yes (Hospitalization)
  Sender: FDA-Public Use
  Company Number: None

PATIENT
  Age: 40 Year
  Sex: Female
  Weight: 56 kg

DRUGS (4)
  1. LEVOFLOXACIN [Suspect]
     Active Substance: LEVOFLOXACIN
     Indication: Dental cyst
     Dosage: UNKNOWN DOSAGE
     Route: 048
     Dates: start: 20240324, end: 20240325
  2. BIRODOGYL [Suspect]
     Active Substance: METRONIDAZOLE\SPIRAMYCIN
     Indication: Dental cyst
     Dosage: UNKNOWN
     Route: 048
     Dates: start: 20240314, end: 20240324
  3. CLINDAMYCIN [Suspect]
     Active Substance: CLINDAMYCIN
     Indication: Dental cyst
     Dosage: 600 MG X2/DAY
     Route: 048
     Dates: start: 20240325, end: 20240327
  4. CLINDAMYCIN [Suspect]
     Active Substance: CLINDAMYCIN
     Indication: Dental cyst
     Dosage: 600 MG X3/DAY
     Route: 048
     Dates: start: 20240327, end: 20240402

REACTIONS (1)
  - Rash maculo-papular [Recovering/Resolving]

NARRATIVE: CASE EVENT DATE: 20240401
